FAERS Safety Report 20145238 (Version 2)
Quarter: 2021Q4

REPORT INFORMATION
  Report Type: Spontaneous
  Country: BR (occurrence: BR)
  Receive Date: 20211203
  Receipt Date: 20211223
  Transmission Date: 20220304
  Serious: Yes (Hospitalization)
  Sender: FDA-Public Use
  Company Number: BR-COLLEGIUM PHARMACEUTICAL, INC.-2021CGM01217

PATIENT
  Age: 64 Year
  Sex: Female

DRUGS (6)
  1. TAPENTADOL [Suspect]
     Active Substance: TAPENTADOL
     Indication: Spinal pain
     Dosage: 1 DOSGE FORM EVERY 12 HOURS
     Route: 048
  2. TAPENTADOL [Suspect]
     Active Substance: TAPENTADOL
     Dosage: 1 DOSAGE FORM EVERY 12 HOURS
     Route: 048
  3. LOSARTAN [Concomitant]
     Active Substance: LOSARTAN
  4. AMIODARONE HYDROCHLORIDE [Concomitant]
     Active Substance: AMIODARONE HYDROCHLORIDE
  5. ALPRAZOLAM [Concomitant]
     Active Substance: ALPRAZOLAM
  6. HYDROCHLOROTHIAZIDE [Concomitant]
     Active Substance: HYDROCHLOROTHIAZIDE

REACTIONS (5)
  - Cough [Not Recovered/Not Resolved]
  - Tremor [Not Recovered/Not Resolved]
  - Dry mouth [Not Recovered/Not Resolved]
  - Insomnia [Not Recovered/Not Resolved]
  - Cerebrovascular accident [Not Recovered/Not Resolved]
